FAERS Safety Report 4632440-X (Version None)
Quarter: 2005Q2

REPORT INFORMATION
  Report Type: 
  Country: None (occurrence: None)
  Receive Date: 20050411
  Receipt Date: 20050119
  Transmission Date: 20051028
  Serious: Yes (Hospitalization)
  Sender: FDA-Public Use
  Company Number: PHBS2005JP01163

PATIENT
  Age: 76 Year
  Sex: Male
  Weight: 50 kg

DRUGS (11)
  1. DIOVAN [Suspect]
     Dosage: 80 MG/DAY
     Route: 048
     Dates: start: 20030709, end: 20050107
  2. DIOVAN [Suspect]
     Dosage: 160 MG/DAY
     Route: 048
     Dates: start: 20050108, end: 20050113
  3. DIOVAN [Suspect]
     Dosage: 80 MG/DAY
     Route: 048
     Dates: start: 20050114
  4. LOCHOL [Concomitant]
     Indication: HYPERLIPIDAEMIA
     Dosage: 20 MG/DAY
     Route: 048
     Dates: start: 20050106
  5. MAINTATE [Concomitant]
     Indication: HYPERTENSION
     Dosage: 2.5 TO 5 MG/DAY
     Route: 048
     Dates: start: 20030709
  6. AMLODIN [Concomitant]
     Indication: HYPERTENSION
     Dosage: 10 MG/DAY
     Route: 048
     Dates: start: 20040110
  7. CARDENALIN [Concomitant]
     Indication: HYPERTENSION
     Dosage: 2 MG/DAY
     Route: 048
     Dates: start: 20040310, end: 20050106
  8. PANALDINE [Concomitant]
     Indication: ANGINA PECTORIS
     Dosage: 200 MG/DAY
     Route: 048
     Dates: start: 20050106
  9. ITOROL [Concomitant]
     Indication: ANGINA PECTORIS
     Dosage: 40 MG/DAY
     Route: 048
     Dates: start: 20050106
  10. ASPIRIN [Concomitant]
     Indication: ANGINA PECTORIS
     Dosage: 100 MG/DAY
     Route: 048
     Dates: start: 20050106
  11. LASIX [Concomitant]
     Indication: CARDIAC FAILURE
     Dosage: 20 MG/DAY
     Route: 048
     Dates: start: 20050108

REACTIONS (6)
  - BLOOD CREATININE INCREASED [None]
  - BLOOD POTASSIUM INCREASED [None]
  - BLOOD UREA INCREASED [None]
  - CARDIAC FAILURE ACUTE [None]
  - HYPERTENSION [None]
  - STENT PLACEMENT [None]
